FAERS Safety Report 5520944-7 (Version None)
Quarter: 2007Q4

REPORT INFORMATION
  Report Type: 
  Country: None (occurrence: None)
  Receive Date: 20071115
  Receipt Date: 20070910
  Transmission Date: 20080405
  Serious: No
  Sender: FDA-Public Use
  Company Number: 20070295

PATIENT
  Sex: Female

DRUGS (1)
  1. HYDRALAZINE HCL [Suspect]

REACTIONS (1)
  - BLOOD PRESSURE INCREASED [None]
